FAERS Safety Report 9925663 (Version 3)
Quarter: 2014Q1

REPORT INFORMATION
  Report Type: Spontaneous
  Country: JP (occurrence: JP)
  Receive Date: 20140226
  Receipt Date: 20140310
  Transmission Date: 20141002
  Serious: No
  Sender: FDA-Public Use
  Company Number: JP-B.I. PHARMACEUTICALS,INC./RIDGEFIELD-2013-BI-39862NB

PATIENT
  Age: 7 Decade
  Sex: Female

DRUGS (3)
  1. BI-SIFROL [Suspect]
     Indication: MOTOR DYSFUNCTION
     Route: 048
  2. BI-SIFROL [Suspect]
     Route: 048
  3. LEVODOPA [Suspect]
     Indication: MOTOR DYSFUNCTION
     Route: 048

REACTIONS (1)
  - Dropped head syndrome [Unknown]
